FAERS Safety Report 10482548 (Version 2)
Quarter: 2014Q3

REPORT INFORMATION
  Report Type: Spontaneous
  Country: BR (occurrence: BR)
  Receive Date: 20140929
  Receipt Date: 20140929
  Transmission Date: 20150326
  Serious: Yes (Hospitalization, Other)
  Sender: FDA-Public Use
  Company Number: BR-009507513-2010SP052387

PATIENT
  Age: 29 Year
  Sex: Female
  Weight: 49 kg

DRUGS (1)
  1. NUVARING [Suspect]
     Active Substance: ETHINYL ESTRADIOL\ETONOGESTREL
     Indication: CONTRACEPTION
     Dosage: 1 DF, UNKNOWN (1 RING EVERY 3 WEEKS AND 1 WEEK OF RING FREE INTERVAL)
     Route: 067
     Dates: start: 201003, end: 20100907

REACTIONS (5)
  - Complication of delivery [Recovered/Resolved]
  - Unintended pregnancy [Recovered/Resolved]
  - Ovarian cyst [Unknown]
  - Caesarean section [Recovered/Resolved]
  - Incorrect product storage [Unknown]

NARRATIVE: CASE EVENT DATE: 201007
